FAERS Safety Report 4570329-5 (Version None)
Quarter: 2005Q1

REPORT INFORMATION
  Report Type: 
  Country: None (occurrence: None)
  Receive Date: 20050204
  Receipt Date: 20040810
  Transmission Date: 20050727
  Serious: Yes (Hospitalization)
  Sender: FDA-Public Use
  Company Number: US-ROCHE-377522

PATIENT
  Age: 28 Year
  Sex: Female
  Weight: 117 kg

DRUGS (11)
  1. PEGASYS [Suspect]
     Indication: HEPATITIS C
     Dosage: ROUTE REPORTED AS INJECTION.
     Route: 050
     Dates: start: 20040501, end: 20040918
  2. PEGASYS [Suspect]
     Dosage: REPORTED AS DOSE REDUCTION.
     Route: 050
  3. COPEGUS [Suspect]
     Indication: HEPATITIS C
     Dosage: DOSAGE REGIMEN: 3 PILLS
     Route: 048
     Dates: start: 20040501, end: 20040918
  4. NEURONTIN [Concomitant]
     Dosage: DOSAGE REGIMEN: 1 PILL, 1/DAY, 300 MG STRENGTH FOR SEIZURE LIKE ACTIVITY. THEN INCREASED ON 01 MAY +
     Route: 048
     Dates: start: 19980101
  5. EFFEXOR XR [Concomitant]
     Indication: DEPRESSION
     Dosage: DOSAGE REGIMEN: 1 PILL TWO TIMES/DAY. PATIENT HAS TAKEN 150 MG STRENGTH AND 3.5MG STRENGTH ALSO.
     Route: 048
     Dates: start: 19980101
  6. URSO 250 [Concomitant]
     Dosage: DOSAGE REGIMEN: 2 PILLS 2 TIMES/DAY
     Route: 048
     Dates: start: 20000101
  7. ENDOCET [Concomitant]
     Dosage: STRENGTH: 5/325. DOSAGE REGIMEN: 1 PILL EVERY 4 TO 6 HOURS
     Route: 048
     Dates: start: 20040606
  8. PROTONIX [Concomitant]
     Dosage: DOSAGE REGIMEN: 1 PILL 2 TIMES PER DAY.
     Route: 048
     Dates: start: 19980101
  9. PERCOCET [Concomitant]
  10. ZAROXOLYN [Concomitant]
     Route: 048
     Dates: start: 20040324
  11. STARLIX [Concomitant]
     Dates: start: 20040428

REACTIONS (19)
  - ABDOMINAL PAIN [None]
  - ANXIETY [None]
  - BLOOD GLUCOSE INCREASED [None]
  - DEPRESSION [None]
  - DYSPNOEA [None]
  - FATIGUE [None]
  - HALLUCINATION, AUDITORY [None]
  - HALLUCINATION, VISUAL [None]
  - HALLUCINATIONS, MIXED [None]
  - HEPATOMEGALY [None]
  - INSOMNIA [None]
  - LIVER DISORDER [None]
  - MOOD SWINGS [None]
  - PAIN [None]
  - PARANOIA [None]
  - PSYCHOTIC DISORDER [None]
  - PULMONARY OEDEMA [None]
  - SKIN LESION [None]
  - SUICIDAL IDEATION [None]
